FAERS Safety Report 7073583-3 (Version None)
Quarter: 2010Q4

REPORT INFORMATION
  Report Type: 
  Country: None (occurrence: None)
  Receive Date: 20101029
  Receipt Date: 20100816
  Transmission Date: 20110411
  Serious: No
  Sender: FDA-Public Use
  Company Number: A0870191A

PATIENT
  Age: 76 Year
  Sex: Male

DRUGS (10)
  1. ADVAIR DISKUS 100/50 [Suspect]
     Indication: CHRONIC OBSTRUCTIVE PULMONARY DISEASE
     Dosage: 1PUFF TWICE PER DAY
     Route: 055
     Dates: start: 20040101
  2. PLAVIX [Concomitant]
  3. ASPIRIN [Concomitant]
  4. SIMVASTATIN [Concomitant]
  5. BENAZEPRIL HYDROCHLORIDE AND HYDROCHLOROTHIAZIDE [Concomitant]
  6. ALLOPURINOL [Concomitant]
  7. LORAZEPAM [Concomitant]
  8. PREVACID [Concomitant]
  9. ALEVE (CAPLET) [Concomitant]
  10. HYDROXYCHLOROQUINE [Concomitant]

REACTIONS (2)
  - PRODUCT QUALITY ISSUE [None]
  - THROAT IRRITATION [None]
